FAERS Safety Report 4881545-7 (Version None)
Quarter: 2006Q1

REPORT INFORMATION
  Report Type: 
  Country: None (occurrence: None)
  Receive Date: 20060116
  Receipt Date: 20060110
  Transmission Date: 20060701
  Serious: Yes (Other)
  Sender: FDA-Public Use
  Company Number: RU-GLAXOSMITHKLINE-B0406247A

PATIENT

DRUGS (1)
  1. LAMICTAL [Suspect]

REACTIONS (4)
  - APNOEA [None]
  - DRUG EXPOSURE DURING PREGNANCY [None]
  - NEURODEVELOPMENTAL DISORDER [None]
  - RESPIRATORY DISTRESS [None]
